FAERS Safety Report 8973134 (Version 1)
Quarter: 2012Q4

REPORT INFORMATION
  Report Type: 
  Country: US (occurrence: US)
  Receive Date: 20121218
  Receipt Date: 20121218
  Transmission Date: 20130627
  Serious: Yes (Other)
  Sender: FDA-Public Use
  Company Number: US-BAXTER-2012BAX027958

PATIENT

DRUGS (6)
  1. CYCLOPHOSPHAMIDE FOR INJECTION, USP [Suspect]
     Indication: EWING^S SARCOMA
     Dosage: 1.2 G/M^2
  2. IFOSFAMIDE [Suspect]
     Indication: EWING^S SARCOMA
     Dosage: 9 G/M^2
  3. VINCRISTINE [Suspect]
     Indication: EWING^S SARCOMA
  4. DOXORUBICIN [Suspect]
     Indication: EWING^S SARCOMA
  5. ETOPOSIDE [Suspect]
     Indication: EWING^S SARCOMA
  6. FILGRASTIM [Concomitant]
     Indication: PROPHYLAXIS

REACTIONS (1)
  - Acute myeloid leukaemia [Unknown]
